FAERS Safety Report 5190075-7 (Version None)
Quarter: 2006Q4

REPORT INFORMATION
  Report Type: 
  Country: None (occurrence: None)
  Receive Date: 20061222
  Receipt Date: 20061213
  Transmission Date: 20070319
  Serious: Yes (Other)
  Sender: FDA-Public Use
  Company Number: DK-AVENTIS-200616380EU

PATIENT
  Age: 51 Year
  Sex: Female

DRUGS (4)
  1. RILUTEK [Suspect]
     Indication: AMYOTROPHIC LATERAL SCLEROSIS
     Dosage: DOSE: UNKNOWN DOSAGE
     Route: 048
     Dates: start: 20061001
  2. MARCUMAR [Suspect]
     Indication: ANTICOAGULANT THERAPY
     Route: 048
     Dates: start: 20020101, end: 20061121
  3. MARCUMAR [Suspect]
     Route: 048
     Dates: start: 20061206, end: 20061213
  4. VITAMIN K [Concomitant]
     Dates: start: 20061213

REACTIONS (2)
  - DRUG INTERACTION [None]
  - INTERNATIONAL NORMALISED RATIO INCREASED [None]
